FAERS Safety Report 21136906 (Version 1)
Quarter: 2022Q3

REPORT INFORMATION
  Report Type: Spontaneous
  Country: US (occurrence: None)
  Receive Date: 20220726
  Receipt Date: 20220726
  Transmission Date: 20221027
  Serious: Yes (Hospitalization)
  Sender: FDA-Public Use
  Company Number: None

PATIENT
  Age: 38 Year
  Sex: Female
  Weight: 104 kg

DRUGS (1)
  1. SKYRIZI [Suspect]
     Active Substance: RISANKIZUMAB-RZAA
     Indication: Psoriasis
     Dosage: OTHER FREQUENCY : AT WEEK0,4 Q12 W;?
     Route: 058
     Dates: start: 20220612, end: 20220612

REACTIONS (4)
  - Skin swelling [None]
  - Erythema [None]
  - Pyrexia [None]
  - Cellulitis [None]

NARRATIVE: CASE EVENT DATE: 20220612
